FAERS Safety Report 10907431 (Version 1)
Quarter: 2015Q1

REPORT INFORMATION
  Report Type: Spontaneous
  Country: US (occurrence: None)
  Receive Date: 20150309
  Receipt Date: 20150309
  Transmission Date: 20150721
  Serious: Yes (Disabling)
  Sender: FDA-Public Use
  Company Number: None

PATIENT
  Age: 27 Year
  Sex: Female
  Weight: 99.34 kg

DRUGS (7)
  1. DEXILANT [Concomitant]
     Active Substance: DEXLANSOPRAZOLE
  2. EDLUAR 10MG [Concomitant]
  3. FLEXERIL 5MG [Concomitant]
  4. BIOTIN 10,000 MG [Concomitant]
  5. NEXPLANON [Suspect]
     Active Substance: ETONOGESTREL
  6. WELBUTRIN 300 MG [Concomitant]
  7. IRON 65 MG 3X [Concomitant]

REACTIONS (4)
  - Device breakage [None]
  - Dyspnoea [None]
  - Menorrhagia [None]
  - Hot flush [None]
